FAERS Safety Report 6415507-5 (Version None)
Quarter: 2009Q4

REPORT INFORMATION
  Report Type: 
  Country: None (occurrence: None)
  Receive Date: 20091027
  Receipt Date: 20091022
  Transmission Date: 20100525
  Serious: Yes (Death)
  Sender: FDA-Public Use
  Company Number: PHEH2009US14314

PATIENT
  Sex: Female

DRUGS (1)
  1. EXJADE [Suspect]
     Dosage: 625 MG,DAILY
     Route: 048
     Dates: start: 20071010, end: 20091002

REACTIONS (2)
  - DEATH [None]
  - MYOCARDIAL INFARCTION [None]
